FAERS Safety Report 17204972 (Version 3)
Quarter: 2020Q1

REPORT INFORMATION
  Report Type: Spontaneous
  Country: US (occurrence: US)
  Receive Date: 20191227
  Receipt Date: 20200301
  Transmission Date: 20200409
  Serious: Yes (Hospitalization)
  Sender: FDA-Public Use
  Company Number: US-B.I. PHARMACEUTICALS,INC./RIDGEFIELD-2019-US-121661

PATIENT
  Age: 84 Year
  Sex: Male

DRUGS (1)
  1. PRADAXA [Suspect]
     Active Substance: DABIGATRAN ETEXILATE MESYLATE
     Indication: ATRIAL FIBRILLATION
     Dosage: BID ONE 150MG CAPSULE
     Route: 048
     Dates: start: 2010

REACTIONS (9)
  - Abdominal distension [Unknown]
  - Haemorrhage [Recovered/Resolved]
  - Hypoacusis [Unknown]
  - Haemorrhage [Recovered/Resolved]
  - Rash [Not Recovered/Not Resolved]
  - Penile haemorrhage [Unknown]
  - Memory impairment [Unknown]
  - Abdominal pain upper [Unknown]
  - Blood urine present [Recovered/Resolved]

NARRATIVE: CASE EVENT DATE: 201909
